FAERS Safety Report 25131025 (Version 1)
Quarter: 2025Q1

REPORT INFORMATION
  Report Type: Spontaneous
  Country: CA (occurrence: CA)
  Receive Date: 20250327
  Receipt Date: 20250327
  Transmission Date: 20250409
  Serious: Yes (Other)
  Sender: SANDOZ
  Company Number: CA-SANDOZ-SDZ2025CA018591

PATIENT

DRUGS (2)
  1. JUBBONTI [Suspect]
     Active Substance: DENOSUMAB-BBDZ
     Indication: Product used for unknown indication
     Route: 058
  2. JUBBONTI [Suspect]
     Active Substance: DENOSUMAB-BBDZ
     Route: 065

REACTIONS (1)
  - Hypocalcaemia [Unknown]
